FAERS Safety Report 5956521-3 (Version None)
Quarter: 2008Q4

REPORT INFORMATION
  Report Type: 
  Country: None (occurrence: None)
  Receive Date: 20081118
  Receipt Date: 20081113
  Transmission Date: 20090506
  Serious: Yes (Other)
  Sender: FDA-Public Use
  Company Number: B0543784A

PATIENT
  Age: 86 Year
  Sex: Female

DRUGS (7)
  1. PAXIL [Suspect]
     Indication: DEPRESSION
     Dosage: 10MG PER DAY
     Route: 048
     Dates: start: 20071105, end: 20081001
  2. MAGMITT [Concomitant]
     Indication: CONSTIPATION
     Dosage: 990MG PER DAY
     Route: 048
     Dates: start: 20070101, end: 20081008
  3. ADETPHOS [Concomitant]
     Indication: DRUG USE FOR UNKNOWN INDICATION
     Dosage: 3G PER DAY
     Route: 048
     Dates: end: 20081001
  4. UNKNOWN DRUG [Concomitant]
     Indication: DRUG USE FOR UNKNOWN INDICATION
     Route: 048
     Dates: end: 20081001
  5. AZULENE [Concomitant]
     Indication: DRUG USE FOR UNKNOWN INDICATION
     Dosage: .5G TWICE PER DAY
     Route: 065
     Dates: end: 20081001
  6. UNKNOWN DRUG [Concomitant]
     Indication: GASTRIC ULCER
     Dosage: 20MG PER DAY
     Route: 048
     Dates: start: 20081008
  7. ZESTROMIN [Concomitant]
     Indication: INSOMNIA
     Dosage: .25MG PER DAY
     Route: 048
     Dates: start: 20070101, end: 20081008

REACTIONS (4)
  - DELIRIUM [None]
  - DRUG WITHDRAWAL SYNDROME [None]
  - RESTLESSNESS [None]
  - SCREAMING [None]
